FAERS Safety Report 7936283-0 (Version None)
Quarter: 2011Q4

REPORT INFORMATION
  Report Type: 
  Country: None (occurrence: None)
  Receive Date: 20111123
  Receipt Date: 20111114
  Transmission Date: 20120403
  Serious: Yes (Hospitalization, Other)
  Sender: FDA-Public Use
  Company Number: US-BAYER-201039551NA

PATIENT
  Age: 43 Year
  Sex: Female

DRUGS (4)
  1. YAZ [Suspect]
     Indication: CONTRACEPTION
     Dosage: UNK
     Route: 048
     Dates: start: 20061101, end: 20061201
  2. ASPIRIN [Concomitant]
  3. LIPITOR [Concomitant]
  4. LAMICTAL [Concomitant]

REACTIONS (4)
  - ALOPECIA [None]
  - CEREBROVASCULAR ACCIDENT [None]
  - HEADACHE [None]
  - PAIN [None]
